FAERS Safety Report 21342837 (Version 1)
Quarter: 2022Q3

REPORT INFORMATION
  Report Type: Spontaneous
  Country: US (occurrence: US)
  Receive Date: 20220916
  Receipt Date: 20220916
  Transmission Date: 20221026
  Serious: Yes (Death, Other)
  Sender: FDA-Public Use
  Company Number: US-Shilpa Medicare Limited-SML-US-2022-01120

PATIENT
  Age: 79 Year
  Sex: Male

DRUGS (3)
  1. ERLOTINIB [Suspect]
     Active Substance: ERLOTINIB
     Indication: Lung carcinoma cell type unspecified stage III
     Route: 065
  2. PEMETREXED [Suspect]
     Active Substance: PEMETREXED
     Indication: Lung carcinoma cell type unspecified stage III
  3. CISPLATIN [Suspect]
     Active Substance: CISPLATIN
     Indication: Lung carcinoma cell type unspecified stage III

REACTIONS (4)
  - Disease progression [Fatal]
  - Malignant pleural effusion [Unknown]
  - Drug resistance [Unknown]
  - Off label use [Unknown]
